FAERS Safety Report 4817566-X (Version None)
Quarter: 2005Q4

REPORT INFORMATION
  Report Type: 
  Country: None (occurrence: None)
  Receive Date: 20051031
  Receipt Date: 20051018
  Transmission Date: 20060501
  Serious: Yes (Death, Hospitalization, Other)
  Sender: FDA-Public Use
  Company Number: 2004096121

PATIENT
  Age: 60 Year
  Sex: Male
  Weight: 80 kg

DRUGS (5)
  1. SERTRALINE HCL [Suspect]
     Indication: ILL-DEFINED DISORDER
     Dates: end: 20040119
  2. OXAZEPAM [Suspect]
     Indication: ILL-DEFINED DISORDER
     Dates: end: 20040119
  3. CITALOPRAM (CITALOPRAM) [Suspect]
     Indication: DEPRESSION
     Dosage: ORAL
     Route: 048
     Dates: start: 20031201, end: 20040113
  4. PROCYCLIDINE HYDROCHLORIDE 2MG TAB [Suspect]
     Indication: AKINESIA
     Dosage: 10 MG (5 MG, 2 IN 1 D)
     Dates: start: 20040101, end: 20040119
  5. THYROXINE (LEVOTHYROXINE) [Concomitant]

REACTIONS (14)
  - AKINESIA [None]
  - BRADYKINESIA [None]
  - CATATONIA [None]
  - DELUSION [None]
  - HEADACHE [None]
  - INJURY [None]
  - MUSCLE SPASMS [None]
  - MUSCLE TWITCHING [None]
  - NAUSEA [None]
  - PARKINSONISM [None]
  - PSYCHOTIC DISORDER [None]
  - ROAD TRAFFIC ACCIDENT [None]
  - SPEECH DISORDER [None]
  - TONIC CLONIC MOVEMENTS [None]
